FAERS Safety Report 11110385 (Version 2)
Quarter: 2015Q2

REPORT INFORMATION
  Report Type: Spontaneous
  Country: US (occurrence: US)
  Receive Date: 20150513
  Receipt Date: 20150515
  Transmission Date: 20150821
  Serious: Yes (Other)
  Sender: FDA-Public Use
  Company Number: US-PFIZER INC-2015160082

PATIENT
  Age: 67 Year
  Sex: Female
  Weight: 73.92 kg

DRUGS (6)
  1. CELEBREX [Suspect]
     Active Substance: CELECOXIB
     Indication: BURSITIS
     Dosage: 400 MG, DAILY
  2. EPITRIL [Concomitant]
  3. CELEBREX [Suspect]
     Active Substance: CELECOXIB
     Indication: OSTEOARTHRITIS
     Dosage: 200 MG, DAILY
     Dates: start: 2004
  4. CELEBREX [Suspect]
     Active Substance: CELECOXIB
     Indication: SPINAL COLUMN STENOSIS
     Dosage: 200 MG, DAILY
  5. METHOCARBAMOL. [Concomitant]
     Active Substance: METHOCARBAMOL
     Indication: MYALGIA
     Dosage: UNK
  6. LORAZEPAM. [Concomitant]
     Active Substance: LORAZEPAM
     Indication: ANXIETY
     Dosage: UNK

REACTIONS (12)
  - Arthritis [Unknown]
  - Chills [Unknown]
  - Intestinal gangrene [Unknown]
  - Gait disturbance [Unknown]
  - Limb discomfort [Unknown]
  - Appendicitis [Unknown]
  - Hernia [Unknown]
  - Condition aggravated [Unknown]
  - Drug effect incomplete [Unknown]
  - Dyspnoea [Unknown]
  - Pain [Unknown]
  - Nerve compression [Unknown]
